FAERS Safety Report 5345801-0 (Version None)
Quarter: 2007Q2

REPORT INFORMATION
  Report Type: 
  Country: None (occurrence: None)
  Receive Date: 20070430
  Receipt Date: 20070215
  Transmission Date: 20071010
  Serious: No
  Sender: FDA-Public Use
  Company Number: 260883

PATIENT
  Age: 58 Year
  Sex: Female
  Weight: 143.3 kg

DRUGS (5)
  1. LEVEMIR [Suspect]
     Indication: DIABETES MELLITUS
     Dosage: 20 IU, QD, SUBCUTANEOUS
     Route: 058
     Dates: start: 20070120
  2. AVANDIA [Concomitant]
  3. METFORMIN (METFORMIN) TABLET [Concomitant]
  4. AVALIDE [Concomitant]
  5. NORVASC [Concomitant]

REACTIONS (1)
  - INJECTION SITE URTICARIA [None]
